FAERS Safety Report 25273817 (Version 1)
Quarter: 2025Q2

REPORT INFORMATION
  Report Type: Spontaneous
  Country: GB (occurrence: GB)
  Receive Date: 20250506
  Receipt Date: 20250506
  Transmission Date: 20250717
  Serious: Yes (Hospitalization)
  Sender: TORRENT PHARMA INC.
  Company Number: None

PATIENT
  Age: 97 Year
  Sex: Female

DRUGS (6)
  1. LOSARTAN [Suspect]
     Active Substance: LOSARTAN
     Indication: Product used for unknown indication
     Dosage: 1OD
     Route: 002
  2. FUROSEMIDE [Suspect]
     Active Substance: FUROSEMIDE
     Indication: Product used for unknown indication
     Dosage: 1OD, 1 LUNCH
     Route: 065
  3. BECLOMETHASONE DIPROPIONATE [Concomitant]
     Active Substance: BECLOMETHASONE DIPROPIONATE
     Indication: Product used for unknown indication
     Dosage: 250 MICROGRAMS / DOSE INHALER - 1PUFF BD
     Route: 055
  4. FLUOXETINE [Concomitant]
     Active Substance: FLUOXETINE HYDROCHLORIDE
     Indication: Product used for unknown indication
     Dosage: 20 MG - 1OD
     Route: 065
  5. Viscotears Liquid Gel [Concomitant]
     Indication: Product used for unknown indication
     Dosage: 2 MG / G LIQUID GEL - QDS PRN AFFECTED EYE
     Route: 065
  6. ZOPICLONE [Concomitant]
     Active Substance: ZOPICLONE
     Indication: Product used for unknown indication
     Dosage: 1OD
     Route: 065

REACTIONS (1)
  - Dizziness postural [Recovered/Resolved]

NARRATIVE: CASE EVENT DATE: 20250224
